FAERS Safety Report 21465435 (Version 6)
Quarter: 2022Q4

REPORT INFORMATION
  Report Type: Report from Study
  Country: AU (occurrence: None)
  Receive Date: 20221017
  Receipt Date: 20221121
  Transmission Date: 20230113
  Serious: Yes (Hospitalization)
  Sender: FDA-Public Use
  Company Number: AU-Eisai Medical Research-EC-2022-125753

PATIENT
  Age: 77 Year
  Sex: Female
  Weight: 84 kg

DRUGS (11)
  1. LENVATINIB [Suspect]
     Active Substance: LENVATINIB
     Indication: Colorectal cancer metastatic
     Route: 048
     Dates: start: 20210625, end: 20210709
  2. LENVATINIB [Suspect]
     Active Substance: LENVATINIB
     Dosage: STARTING DOSE AT 14 MG, FLUCTUATED DOSAGE
     Route: 048
     Dates: start: 20210723, end: 20221011
  3. LENVATINIB [Suspect]
     Active Substance: LENVATINIB
     Route: 048
     Dates: start: 20221021
  4. PEMBROLIZUMAB [Suspect]
     Active Substance: PEMBROLIZUMAB
     Indication: Colorectal cancer metastatic
     Route: 042
     Dates: start: 20210625, end: 20210625
  5. PEMBROLIZUMAB [Suspect]
     Active Substance: PEMBROLIZUMAB
     Route: 042
     Dates: start: 20210820
  6. ERGOCALCIFEROL [Concomitant]
     Active Substance: ERGOCALCIFEROL
     Dates: start: 20210528
  7. SOTALOL [Concomitant]
     Active Substance: SOTALOL
     Dates: start: 201301
  8. MELATONIN [Concomitant]
     Active Substance: MELATONIN
     Dates: start: 201901, end: 20211031
  9. PANADOL [Concomitant]
     Active Substance: ACETAMINOPHEN
     Dates: start: 20210708, end: 20210724
  10. XARELTO [Concomitant]
     Active Substance: RIVAROXABAN
     Dates: start: 20210626
  11. GASTROSTOP [Concomitant]
     Dates: start: 20210705, end: 20210720

REACTIONS (1)
  - Hypertension [Not Recovered/Not Resolved]

NARRATIVE: CASE EVENT DATE: 20210709
